FAERS Safety Report 9442235 (Version 1)
Quarter: 2013Q3

REPORT INFORMATION
  Report Type: Spontaneous
  Country: US (occurrence: None)
  Receive Date: 20130805
  Receipt Date: 20130805
  Transmission Date: 20140515
  Serious: Yes (Other)
  Sender: FDA-Public Use
  Company Number: None

PATIENT
  Sex: Male

DRUGS (12)
  1. REVLIMID [Suspect]
     Indication: BONE MARROW DISORDER
     Dosage: 1, 1, MOUTH
     Route: 048
     Dates: start: 201210, end: 20130715
  2. REVLIMID [Suspect]
     Indication: NEOPLASM MALIGNANT
     Dosage: 1, 1, MOUTH
     Route: 048
     Dates: start: 201210, end: 20130715
  3. VERADANIL [Concomitant]
  4. LISINOPRIL [Concomitant]
  5. LOVASTATIN [Concomitant]
  6. METFORMIN [Concomitant]
  7. TRANSFUSION [Concomitant]
  8. DOXAZOSIN [Concomitant]
  9. ASPIRIN [Concomitant]
  10. REVLIMID [Concomitant]
  11. DEXAMETHASONE [Concomitant]
  12. MUTIPLE VITAMIN [Concomitant]

REACTIONS (2)
  - Urticaria [None]
  - Skin discolouration [None]
